FAERS Safety Report 12763326 (Version 1)
Quarter: 2016Q3

REPORT INFORMATION
  Report Type: Spontaneous
  Country: CH (occurrence: CH)
  Receive Date: 20160920
  Receipt Date: 20160920
  Transmission Date: 20161109
  Serious: Yes (Life-Threatening, Hospitalization)
  Sender: FDA-Public Use
  Company Number: CH-TEVA-691624ISR

PATIENT
  Age: 52 Year
  Sex: Male
  Weight: 87 kg

DRUGS (11)
  1. SERTRALINE [Suspect]
     Active Substance: SERTRALINE HYDROCHLORIDE
     Dosage: 100 MILLIGRAM DAILY; DOSE REDUCED DUE TO QT PROLONGATION
     Route: 048
     Dates: start: 201601, end: 201604
  2. SERTRALINE [Suspect]
     Active Substance: SERTRALINE HYDROCHLORIDE
     Indication: DEPRESSION
     Dosage: 50 MILLIGRAM DAILY;
     Route: 048
     Dates: start: 201604, end: 20160810
  3. BELOC ZOK [Concomitant]
     Active Substance: METOPROLOL SUCCINATE
     Dosage: 25 MILLIGRAM DAILY;
     Route: 048
  4. LISITRIL [Concomitant]
     Active Substance: LISINOPRIL
     Dosage: 10 MILLIGRAM DAILY; STRENGTH 20 MG
     Route: 048
  5. XARELTO [Concomitant]
     Active Substance: RIVAROXABAN
     Dosage: 20 MILLIGRAM DAILY;
     Route: 048
  6. INSPRA [Concomitant]
     Active Substance: EPLERENONE
     Dosage: 25 MILLIGRAM DAILY;
     Route: 048
  7. TORASEMID [Concomitant]
     Active Substance: TORSEMIDE
     Dosage: 2.5 MILLIGRAM DAILY;
     Route: 048
  8. AMLODIPIN [Concomitant]
     Active Substance: AMLODIPINE BESYLATE
     Dosage: 10 MILLIGRAM DAILY;
     Route: 048
  9. PRAVASTATIN. [Concomitant]
     Active Substance: PRAVASTATIN
     Dosage: 20 MILLIGRAM DAILY;
     Route: 048
  10. JANUVIA [Concomitant]
     Active Substance: SITAGLIPTIN PHOSPHATE
     Dosage: 100 MILLIGRAM DAILY;
     Route: 048
  11. VITAMIN D [Concomitant]
     Active Substance: CHOLECALCIFEROL
     Dosage: 8 GTT DAILY;
     Route: 048

REACTIONS (2)
  - Ventricular fibrillation [Recovered/Resolved]
  - Cardio-respiratory arrest [Recovering/Resolving]

NARRATIVE: CASE EVENT DATE: 20160810
